FAERS Safety Report 7674437-1 (Version None)
Quarter: 2011Q3

REPORT INFORMATION
  Report Type: 
  Country: None (occurrence: None)
  Receive Date: 20110810
  Receipt Date: 20110728
  Transmission Date: 20111222
  Serious: Yes (Other)
  Sender: FDA-Public Use
  Company Number: US-RANBAXY-2010RR-39554

PATIENT
  Sex: Female

DRUGS (20)
  1. LEVAQUIN [Suspect]
     Indication: PROPHYLAXIS
     Dosage: 500 MG, QD
     Route: 048
     Dates: start: 20060710
  2. CIPROFLOXACIN [Suspect]
     Dosage: UNK
     Route: 066
     Dates: start: 20090709
  3. METHYLPREDNISOLONE [Suspect]
     Dosage: UNK
     Route: 065
     Dates: start: 20070830
  4. PREDNISOLONE [Suspect]
     Dosage: 5 MG, TID
     Route: 048
     Dates: start: 20090311
  5. LEVAQUIN [Suspect]
     Dosage: 500 MG, QID
     Route: 048
     Dates: start: 20070402
  6. LEVAQUIN [Suspect]
     Dosage: 500 MG, QD
     Route: 048
     Dates: start: 20080206
  7. PREDNISOLONE [Suspect]
     Indication: CHRONIC OBSTRUCTIVE PULMONARY DISEASE
     Dosage: 5 MG, TID
     Route: 048
     Dates: start: 20050509
  8. LEVAQUIN [Suspect]
     Dosage: 500 MG, QD
     Route: 048
     Dates: start: 20061030
  9. CIPROFLOXACIN [Suspect]
     Indication: INFECTION
     Dosage: UNK
     Route: 065
     Dates: start: 20060830
  10. PREDNISOLONE [Suspect]
     Dosage: 5 MG, TID
     Route: 048
     Dates: start: 20090826
  11. LEVAQUIN [Suspect]
     Dosage: 500 MG, QD
     Route: 048
     Dates: start: 20061204
  12. LEVAQUIN [Suspect]
     Dosage: 500 MG, QD
     Route: 048
     Dates: start: 20090929
  13. CIPROFLOXACIN [Suspect]
     Dosage: UNK
     Route: 065
     Dates: start: 20090702
  14. LEVAQUIN [Suspect]
     Dosage: 500 MG, QD
     Route: 048
     Dates: start: 20070904
  15. PREDNISOLONE [Suspect]
     Dosage: 5 MG, TID
     Route: 048
     Dates: start: 20090602
  16. LEVAQUIN [Suspect]
     Dosage: 500 MG, QD
     Route: 048
     Dates: start: 20051205
  17. PREDNISOLONE [Suspect]
     Dosage: 5 MG, TID
     Route: 048
     Dates: start: 20071030
  18. PREDNISOLONE [Suspect]
     Dosage: 5 MG, TID
     Route: 048
     Dates: start: 20100218
  19. LEVAQUIN [Suspect]
     Indication: INFECTION
     Dosage: 500 MG, QD
     Route: 048
     Dates: start: 20050512
  20. METHYLPREDNISOLONE [Suspect]
     Indication: CHRONIC OBSTRUCTIVE PULMONARY DISEASE
     Dosage: UNK
     Route: 065
     Dates: start: 20060215

REACTIONS (1)
  - ROTATOR CUFF SYNDROME [None]
